FAERS Safety Report 4913467-7 (Version None)
Quarter: 2006Q1

REPORT INFORMATION
  Report Type: 
  Country: None (occurrence: None)
  Receive Date: 20060113
  Receipt Date: 20041230
  Transmission Date: 20060701
  Serious: Yes (Other)
  Sender: FDA-Public Use
  Company Number: HQWYE300030DEC04

PATIENT
  Age: 47 Year
  Sex: Female

DRUGS (7)
  1. PREMPHASE (PREMARIN;CYCRIN 14/14) [Suspect]
     Dates: start: 20020101
  2. ESTRATAB [Suspect]
     Dates: start: 19990101
  3. ESTRATEST [Suspect]
     Dates: start: 19990101, end: 20010101
  4. MEDROXYPROGESTERONE [Suspect]
     Dates: start: 20000101, end: 20000101
  5. PREMARIN [Suspect]
     Dates: start: 19990101, end: 19990101
  6. PROMETRIUM [Suspect]
     Dates: start: 19990101, end: 20010101
  7. PROVERA [Suspect]
     Dates: start: 19990101, end: 19990101

REACTIONS (1)
  - BREAST CANCER [None]
